FAERS Safety Report 18474121 (Version 3)
Quarter: 2023Q1

REPORT INFORMATION
  Report Type: Spontaneous
  Country: US (occurrence: US)
  Receive Date: 20201106
  Receipt Date: 20230317
  Transmission Date: 20230418
  Serious: No
  Sender: FDA-Public Use
  Company Number: US-PFIZER INC-2020335651

PATIENT
  Age: 61 Year
  Sex: Female

DRUGS (2)
  1. XELJANZ [Suspect]
     Active Substance: TOFACITINIB CITRATE
     Indication: Alopecia areata
     Dosage: 5 MG
  2. XELJANZ [Suspect]
     Active Substance: TOFACITINIB CITRATE
     Dosage: BID
     Route: 048

REACTIONS (3)
  - Drug ineffective for unapproved indication [Unknown]
  - Off label use [Unknown]
  - Panic reaction [Unknown]

NARRATIVE: CASE EVENT DATE: 20200101
